FAERS Safety Report 9836470 (Version 3)
Quarter: 2014Q1

REPORT INFORMATION
  Report Type: Report from Study
  Country: FR (occurrence: FR)
  Receive Date: 20140123
  Receipt Date: 20140131
  Transmission Date: 20141002
  Serious: Yes (Hospitalization, Other)
  Sender: FDA-Public Use
  Company Number: FR-ROCHE-1161314

PATIENT
  Age: 59 Year
  Sex: Female

DRUGS (15)
  1. RITUXIMAB [Suspect]
     Indication: RHEUMATOID ARTHRITIS
     Dosage: DAY 15 INFUSION ON 16/FEB/2007
     Route: 041
     Dates: start: 20070201
  2. RITUXIMAB [Suspect]
     Dosage: DAY 15 INFUSION ON 11/DEC/2007
     Route: 042
     Dates: start: 20071127
  3. RITUXIMAB [Suspect]
     Dosage: DAY 15 INFUSION ON 19/JUN/2008
     Route: 042
     Dates: start: 20080605, end: 20090428
  4. METHOTREXATE [Concomitant]
     Route: 065
  5. METHOTREXATE [Concomitant]
     Route: 065
  6. METHOTREXATE [Concomitant]
     Route: 065
  7. METHOTREXATE [Concomitant]
     Dosage: PER DAY
     Route: 065
  8. METHOTREXATE [Concomitant]
     Dosage: PER DAY
     Route: 065
  9. METHOTREXATE [Concomitant]
     Dosage: PER DAY
     Route: 065
  10. SPECIAFOLDINE [Concomitant]
  11. LEXOMIL [Concomitant]
  12. EFFERALGAN [Concomitant]
  13. CODEINE [Concomitant]
  14. TAREG [Concomitant]
  15. INEXIUM [Concomitant]

REACTIONS (29)
  - Bronchitis [Recovered/Resolved]
  - Gastroenteritis [Recovered/Resolved]
  - Pulmonary embolism [Recovered/Resolved]
  - Arthritis [Recovered/Resolved]
  - Lung infection [Recovered/Resolved]
  - Infection [Unknown]
  - Pleurisy [Not Recovered/Not Resolved]
  - Genital herpes [Not Recovered/Not Resolved]
  - Diarrhoea [Recovered/Resolved]
  - Eye irritation [Unknown]
  - Eye pruritus [Unknown]
  - Dry mouth [Unknown]
  - Dry eye [Unknown]
  - Pyrexia [Recovered/Resolved]
  - Fall [Unknown]
  - Tonsillitis [Unknown]
  - Anxiety [Unknown]
  - Sinusitis [Recovered/Resolved]
  - Synovial cyst [Unknown]
  - Genital herpes [Unknown]
  - Sleep disorder [Unknown]
  - Migraine [Unknown]
  - Depression [Unknown]
  - Dyspepsia [Recovered/Resolved]
  - Constipation [Unknown]
  - Rhinitis [Recovered/Resolved]
  - Vomiting [Recovered/Resolved]
  - Urinary tract infection [Recovered/Resolved]
  - Bronchitis [Recovered/Resolved]
